FAERS Safety Report 23938260 (Version 1)
Quarter: 2024Q2

REPORT INFORMATION
  Report Type: Spontaneous
  Country: FR (occurrence: None)
  Receive Date: 20240604
  Receipt Date: 20240604
  Transmission Date: 20240716
  Serious: Yes (Hospitalization)
  Sender: FDA-Public Use
  Company Number: 2024A127997

PATIENT
  Age: 44 Year
  Sex: Male

DRUGS (5)
  1. QUETIAPINE [Interacting]
     Active Substance: QUETIAPINE
     Indication: Depressed mood
     Dates: start: 20240424, end: 20240501
  2. QUETIAPINE [Interacting]
     Active Substance: QUETIAPINE
     Indication: Depressed mood
     Dosage: QUETIAPINE 50 MG. FOR APPROXIMATELY 4 MONTHS WITH GRADUAL REDUCTION OVER TWO YEARS THEREAFTER AND...
     Dates: end: 202109
  3. OXAZEPAM [Interacting]
     Active Substance: OXAZEPAM
     Indication: Depressed mood
     Dates: start: 20240424, end: 20240501
  4. OXAZEPAM [Interacting]
     Active Substance: OXAZEPAM
     Indication: Depressed mood
     Dosage: OXAZEPAM 10 MG. FOR APPROXIMATELY 4 MONTHS WITH GRADUAL REDUCTION OVER TWO YEARS THEREAFTER AND C...
     Dates: end: 202109
  5. ALCOHOL [Concomitant]
     Active Substance: ALCOHOL
     Dosage: SVT BY IMV (SERTRALINE) AND OH IN MAY 2019
     Dates: start: 201905

REACTIONS (4)
  - Anterograde amnesia [Recovered/Resolved]
  - Drug interaction [Recovered/Resolved]
  - Road traffic accident [Recovered/Resolved]
  - Disturbance in attention [Recovered/Resolved]

NARRATIVE: CASE EVENT DATE: 20240501
